FAERS Safety Report 21400114 (Version 1)
Quarter: 2022Q4

REPORT INFORMATION
  Report Type: Spontaneous
  Country: ES (occurrence: ES)
  Receive Date: 20221002
  Receipt Date: 20221002
  Transmission Date: 20230112
  Serious: Yes (Other)
  Sender: FDA-Public Use
  Company Number: None

PATIENT
  Age: 65 Year
  Sex: Male

DRUGS (2)
  1. VALGANCICLOVIR [Suspect]
     Active Substance: VALGANCICLOVIR
     Indication: Cytomegalovirus infection
     Dosage: VALGANCICLOVIR (2861A), DURATION: 3 DAYS
     Route: 065
     Dates: start: 20220621, end: 20220623
  2. VORICONAZOLE [Suspect]
     Active Substance: VORICONAZOLE
     Indication: Opportunistic infection
     Dosage: VORICONAZOL (2878A), UNIT DOSE: 330MG, FREQUENCY TIME: 1 DAYS, DURATION: 2 DAYS
     Route: 065
     Dates: start: 20220621, end: 20220622

REACTIONS (1)
  - Hallucination, visual [Recovered/Resolved]

NARRATIVE: CASE EVENT DATE: 20220622
